FAERS Safety Report 8923756 (Version 2)
Quarter: 2012Q4

REPORT INFORMATION
  Report Type: 
  Country: US (occurrence: US)
  Receive Date: 20121126
  Receipt Date: 20121227
  Transmission Date: 20130627
  Serious: Yes (Hospitalization)
  Sender: FDA-Public Use
  Company Number: US-BAYER-2012-121776

PATIENT
  Age: 47 Year
  Sex: Female

DRUGS (24)
  1. YASMIN [Suspect]
  2. ABILIFY [Concomitant]
     Dosage: 15 mg, UNK
     Dates: start: 20071012
  3. ABILIFY [Concomitant]
     Dosage: 15 mg, UNK
     Dates: start: 20071114
  4. PAXIL CR [Concomitant]
     Dosage: 25 mg, UNK
     Dates: start: 20071012
  5. PAXIL CR [Concomitant]
     Dosage: 25 mg, UNK
     Dates: start: 20071114
  6. WELLBUTRIN XL [Concomitant]
     Dosage: 150 mg, UNK
     Dates: start: 20071012
  7. WELLBUTRIN XL [Concomitant]
     Dosage: 150 mg, UNK
     Dates: start: 20071114
  8. KLONOPIN [Concomitant]
     Dosage: 1 mg, UNK
     Dates: start: 20070919
  9. KLONOPIN [Concomitant]
     Dosage: 1 mg, UNK
     Dates: start: 20071023
  10. KLONOPIN [Concomitant]
     Dosage: 1 mg, UNK
     Dates: start: 20071115
  11. SEROQUEL [Concomitant]
     Dosage: 50 mg, UNK
     Dates: start: 20071012
  12. SEROQUEL [Concomitant]
     Dosage: 50 mg, UNK
     Dates: start: 20071115
  13. SEROQUEL [Concomitant]
     Dosage: 50 mg, UNK
     Dates: start: 20071214
  14. ACIPHEX [Concomitant]
     Dosage: 20 mg, UNK
     Dates: start: 20071114
  15. VYTORIN [Concomitant]
     Dosage: 10/20mg
     Dates: start: 20071114
  16. VYTORIN [Concomitant]
     Dosage: 10/20mg
     Dates: start: 20071214
  17. FEXOFENADINE [Concomitant]
  18. OXYCODONE/APAP [Concomitant]
     Dosage: 5-325mg
     Dates: start: 20070926
  19. OXYCODONE/APAP [Concomitant]
     Dosage: 5-325mg
     Dates: start: 20071010
  20. IBUPROFEN [Concomitant]
     Dosage: 800 mg, UNK
     Dates: start: 20071103
  21. ADDERALL XR [Concomitant]
     Dosage: 30 mg, UNK
     Dates: start: 20071114
  22. ADDERALL XR [Concomitant]
     Dosage: 30 mg, UNK
     Dates: start: 20071214
  23. HYDROCODONE W/APAP [Concomitant]
     Dosage: 5-500mg
     Dates: start: 20071213
  24. VICODIN [Concomitant]

REACTIONS (2)
  - Pulmonary embolism [None]
  - Deep vein thrombosis [None]
